FAERS Safety Report 23349618 (Version 1)
Quarter: 2023Q4

REPORT INFORMATION
  Report Type: Spontaneous
  Country: JP (occurrence: JP)
  Receive Date: 20231229
  Receipt Date: 20231229
  Transmission Date: 20240110
  Serious: Yes (Hospitalization, Other)
  Sender: FDA-Public Use
  Company Number: JP-HALEON-JPCH2023APC067102

PATIENT

DRUGS (12)
  1. DEXTROMETHORPHAN [Suspect]
     Active Substance: DEXTROMETHORPHAN
     Indication: Suicide attempt
     Dosage: 320 DF, 4800 MG
  2. DEXTROMETHORPHAN [Suspect]
     Active Substance: DEXTROMETHORPHAN
     Dosage: UNK, 500-1000 MG INTERMITTENTLY
  3. IBUPROFEN [Suspect]
     Active Substance: IBUPROFEN
     Indication: Suicide attempt
     Dosage: 1800 MG
  4. ACETAMINOPHEN [Suspect]
     Active Substance: ACETAMINOPHEN
     Indication: Suicide attempt
     Dosage: 600 MG
  5. CAFFEINE [Suspect]
     Active Substance: CAFFEINE
     Indication: Suicide attempt
     Dosage: 950 MG
  6. DIHYDROCODEINE PHOSPHATE [Suspect]
     Active Substance: DIHYDROCODEINE PHOSPHATE
     Indication: Suicide attempt
     Dosage: 150 MG
  7. METHYLEPHEDRINE [Suspect]
     Active Substance: METHYLEPHEDRINE
     Indication: Suicide attempt
     Dosage: 400 MG
  8. CHLORPHENIRAMINE MALEATE [Suspect]
     Active Substance: CHLORPHENIRAMINE MALEATE
     Indication: Suicide attempt
     Dosage: 60 MG
  9. ESCITALOPRAM [Suspect]
     Active Substance: ESCITALOPRAM OXALATE
     Indication: Depression
     Dosage: 5 MG
  10. ESCITALOPRAM [Suspect]
     Active Substance: ESCITALOPRAM OXALATE
     Indication: Eating disorder
  11. LITHIUM [Concomitant]
     Active Substance: LITHIUM
     Indication: Depression
     Dosage: 800 MG
  12. LITHIUM [Concomitant]
     Active Substance: LITHIUM
     Indication: Eating disorder

REACTIONS (18)
  - Suicide attempt [Unknown]
  - Toxic encephalopathy [Recovered/Resolved]
  - Coma [Recovered/Resolved]
  - Hallucination, visual [Recovered/Resolved]
  - Hallucination, auditory [Recovered/Resolved]
  - Altered state of consciousness [Recovered/Resolved]
  - Overdose [Unknown]
  - Euphoric mood [Recovered/Resolved]
  - Mydriasis [Unknown]
  - Tachycardia [Unknown]
  - Respiratory rate increased [Unknown]
  - Hyperthermia [Unknown]
  - Somnolence [Recovered/Resolved]
  - Waxy flexibility [Recovered/Resolved]
  - Echolalia [Recovered/Resolved]
  - Insomnia [Recovered/Resolved]
  - Mental status changes [Recovered/Resolved]
  - Potentiating drug interaction [Unknown]
